FAERS Safety Report 5018836-5 (Version None)
Quarter: 2006Q2

REPORT INFORMATION
  Report Type: 
  Country: None (occurrence: None)
  Receive Date: 20060531
  Receipt Date: 20060503
  Transmission Date: 20061013
  Serious: Yes (Other)
  Sender: FDA-Public Use
  Company Number: 2006068752

PATIENT
  Sex: Female
  Weight: 61.2356 kg

DRUGS (3)
  1. KAOPECTATE STOOL SOFTENER (DOCUSATE CALCIUM) [Suspect]
     Indication: FAECES HARD
     Dosage: ONE NIGHTLY, ORAL
     Route: 048
  2. CIMETIDINE [Concomitant]
  3. OXAZEPAM [Concomitant]

REACTIONS (1)
  - MACULAR DEGENERATION [None]
